FAERS Safety Report 15464336 (Version 7)
Quarter: 2019Q2

REPORT INFORMATION
  Report Type: Spontaneous
  Country: HU (occurrence: HU)
  Receive Date: 20181004
  Receipt Date: 20190521
  Transmission Date: 20190711
  Serious: Yes (Life-Threatening, Hospitalization)
  Sender: FDA-Public Use
  Company Number: HU-PFIZER INC-2018396343

PATIENT
  Age: 75 Year
  Sex: Male

DRUGS (12)
  1. INSULIN [INSULIN HUMAN] [Concomitant]
     Dosage: UNK, STARTED YEARS AGO
  2. LYRICA [Suspect]
     Active Substance: PREGABALIN
     Indication: PAIN IN EXTREMITY
  3. THIOGAMMA [Concomitant]
     Active Substance: THIOCTIC ACID
     Dosage: UNK, STARTED YEARS AGO
  4. DOXILEK [Concomitant]
     Active Substance: CALCIUM DOBESILATE
     Dosage: UNK, STARTED YEARS AGO
  5. METFOGAMMA [Concomitant]
     Active Substance: METFORMIN HYDROCHLORIDE
     Dosage: UNK, STARTED YEARS AGO
  6. ROSUVASTATIN SANDOZ [Concomitant]
     Active Substance: ROSUVASTATIN CALCIUM
     Dosage: UNK, STARTED YEARS AGO
  7. ROSUTEC [Concomitant]
     Dosage: UNK, STARTED YEARS AGO
  8. LANZOPRAZOL [Concomitant]
     Active Substance: LANSOPRAZOLE
     Dosage: UNK, STARTED YEARS AGO
  9. ASPIRIN [ACETYLSALICYLIC ACID] [Concomitant]
     Active Substance: ASPIRIN
     Dosage: UNK, STARTED YEARS AGO
  10. GLICLADA [Concomitant]
     Active Substance: GLICLAZIDE
     Dosage: UNK, STARTED YEARS AGO
  11. TAMSULOZIN [Concomitant]
     Dosage: UNK, STARTED YEARS AGO
  12. LYRICA [Suspect]
     Active Substance: PREGABALIN
     Indication: MUSCLE SPASMS
     Dosage: 75 MG, DAILY (DAILY 1 CAPSULE), STARTED 2-3 YEARS AGO
     Dates: end: 201809

REACTIONS (12)
  - Arthropod sting [Unknown]
  - Muscle spasms [Unknown]
  - Swollen tongue [Recovered/Resolved]
  - Drug ineffective [Unknown]
  - Somnolence [Recovered/Resolved]
  - Condition aggravated [Unknown]
  - Arthralgia [Unknown]
  - Feeling abnormal [Not Recovered/Not Resolved]
  - Dyspnoea [Recovered/Resolved]
  - Intentional product use issue [Unknown]
  - Tinnitus [Not Recovered/Not Resolved]
  - Pharyngeal swelling [Recovered/Resolved]

NARRATIVE: CASE EVENT DATE: 201706
